FAERS Safety Report 4616866-6 (Version None)
Quarter: 2005Q1

REPORT INFORMATION
  Report Type: 
  Country: None (occurrence: None)
  Receive Date: 20050321
  Receipt Date: 20040526
  Transmission Date: 20050727
  Serious: No
  Sender: FDA-Public Use
  Company Number: 8131

PATIENT
  Age: 57 Year
  Sex: Male

DRUGS (2)
  1. AMIODARONE [Suspect]
     Dosage: 200 MG
  2. WARFARIN SODIUM [Suspect]
     Dosage: 28.5 MG WEEKLY

REACTIONS (3)
  - DRUG INTERACTION [None]
  - HYPERTHYROIDISM [None]
  - INTERNATIONAL NORMALISED RATIO INCREASED [None]
